FAERS Safety Report 12678476 (Version 6)
Quarter: 2023Q4

REPORT INFORMATION
  Report Type: Report from Study
  Country: CA (occurrence: CA)
  Receive Date: 20160823
  Receipt Date: 20231113
  Transmission Date: 20240110
  Serious: Yes (Other)
  Sender: FDA-Public Use
  Company Number: PHHY2016CA060905

PATIENT
  Age: 48 Year
  Sex: Male

DRUGS (12)
  1. COSENTYX [Suspect]
     Active Substance: SECUKINUMAB
     Indication: Product used for unknown indication
     Dosage: 300 MG, QW
     Route: 058
     Dates: start: 20160415
  2. COSENTYX [Suspect]
     Active Substance: SECUKINUMAB
     Dosage: 300 MG, QW
     Route: 058
     Dates: start: 20160422
  3. COSENTYX [Suspect]
     Active Substance: SECUKINUMAB
     Dosage: 300 MG, QW
     Route: 058
     Dates: start: 20160429
  4. COSENTYX [Suspect]
     Active Substance: SECUKINUMAB
     Dosage: 300 MG, QW
     Route: 058
     Dates: start: 20160506
  5. COSENTYX [Suspect]
     Active Substance: SECUKINUMAB
     Dosage: 300 MG, QMO
     Route: 058
     Dates: start: 20160513
  6. COSENTYX [Suspect]
     Active Substance: SECUKINUMAB
     Dosage: 300 MG, QMO
     Route: 058
     Dates: start: 20160613
  7. COSENTYX [Suspect]
     Active Substance: SECUKINUMAB
     Dosage: 300 MG, QMO
     Route: 058
     Dates: start: 20160713
  8. COSENTYX [Suspect]
     Active Substance: SECUKINUMAB
     Dosage: 300 MG, QMO
     Route: 058
     Dates: end: 20200719
  9. STELARA [Concomitant]
     Active Substance: USTEKINUMAB
     Indication: Product used for unknown indication
     Dosage: UNK
     Route: 065
  10. METHOTREXATE [Concomitant]
     Active Substance: METHOTREXATE
     Indication: Product used for unknown indication
     Dosage: UNK
     Route: 065
  11. BETADERM [Concomitant]
     Active Substance: BETAMETHASONE VALERATE
     Indication: Product used for unknown indication
     Dosage: UNK, QW
     Route: 061
  12. BETAMETHASONE\CALCIPOTRIENE [Concomitant]
     Active Substance: BETAMETHASONE\CALCIPOTRIENE
     Indication: Product used for unknown indication
     Dosage: 5 MG, QMO
     Route: 061
     Dates: start: 2020, end: 2023

REACTIONS (19)
  - Staphylococcal infection [Unknown]
  - Malaise [Recovering/Resolving]
  - Feeling abnormal [Recovering/Resolving]
  - Cyst [Unknown]
  - Melanocytic naevus [Unknown]
  - Skin exfoliation [Not Recovered/Not Resolved]
  - Skin wrinkling [Unknown]
  - Dry skin [Unknown]
  - Hair growth abnormal [Unknown]
  - Furuncle [Recovered/Resolved]
  - Oral candidiasis [Unknown]
  - Sinusitis [Recovering/Resolving]
  - Nasal discomfort [Recovering/Resolving]
  - Cough [Recovering/Resolving]
  - Oropharyngeal pain [Recovering/Resolving]
  - Productive cough [Recovering/Resolving]
  - Headache [Recovering/Resolving]
  - Toothache [Recovering/Resolving]
  - Psoriasis [Unknown]

NARRATIVE: CASE EVENT DATE: 20160101
